FAERS Safety Report 25356381 (Version 1)
Quarter: 2025Q2

REPORT INFORMATION
  Report Type: Spontaneous
  Country: CA (occurrence: CA)
  Receive Date: 20250526
  Receipt Date: 20250526
  Transmission Date: 20250717
  Serious: Yes (Other)
  Sender: INTERCEPT PHARMACEUTICALS
  Company Number: CA-ADVANZ PHARMA-202210007363

PATIENT
  Age: 59 Year
  Sex: Female

DRUGS (5)
  1. OCALIVA [Suspect]
     Active Substance: OBETICHOLIC ACID
     Indication: Primary biliary cholangitis
     Route: 048
     Dates: start: 20211229
  2. OCALIVA [Suspect]
     Active Substance: OBETICHOLIC ACID
     Dosage: 5 MG, QD, OCALIVA
     Route: 048
     Dates: start: 20220201
  3. OCALIVA [Suspect]
     Active Substance: OBETICHOLIC ACID
     Route: 048
     Dates: start: 20240429
  4. OCALIVA [Suspect]
     Active Substance: OBETICHOLIC ACID
     Dosage: 5 MILLIGRAM, QW
     Route: 048
  5. URSODIOL [Concomitant]
     Active Substance: URSODIOL

REACTIONS (8)
  - Hepatocellular carcinoma [Unknown]
  - Liver ablation [Unknown]
  - Hepatic cirrhosis [Unknown]
  - Blood alkaline phosphatase increased [Recovering/Resolving]
  - Drug ineffective [Unknown]
  - Therapy cessation [Unknown]
  - Incorrect dose administered [Unknown]
  - Off label use [Unknown]

NARRATIVE: CASE EVENT DATE: 20221028
